FAERS Safety Report 6729396-2 (Version None)
Quarter: 2010Q2

REPORT INFORMATION
  Report Type: 
  Country: None (occurrence: None)
  Receive Date: 20100518
  Receipt Date: 20100512
  Transmission Date: 20101027
  Serious: Yes (Hospitalization)
  Sender: FDA-Public Use
  Company Number: US-BIOGENIDEC-2010BI010360

PATIENT
  Age: 46 Year
  Sex: Male

DRUGS (7)
  1. TYSABRI [Suspect]
     Indication: MULTIPLE SCLEROSIS
     Route: 042
     Dates: start: 20091217
  2. VITAMIN D [Concomitant]
  3. MULTI-VITAMIN [Concomitant]
  4. LORAZEPAM [Concomitant]
  5. PAROXETINE [Concomitant]
  6. TRAZODONE HCL [Concomitant]
  7. RISPERIDONE [Concomitant]

REACTIONS (4)
  - FALL [None]
  - MULTIPLE SCLEROSIS RELAPSE [None]
  - OBSESSIVE-COMPULSIVE DISORDER [None]
  - RENAL FUNCTION TEST [None]
